FAERS Safety Report 22238489 (Version 1)
Quarter: 2023Q2

REPORT INFORMATION
  Report Type: Spontaneous
  Country: US (occurrence: None)
  Receive Date: 20230419
  Receipt Date: 20230419
  Transmission Date: 20230721
  Serious: Yes (Hospitalization)
  Sender: FDA-Public Use
  Company Number: None

PATIENT
  Sex: Male

DRUGS (1)
  1. HUMIRA [Suspect]
     Active Substance: ADALIMUMAB
     Indication: Inflammatory bowel disease
     Dosage: 40MG EVERY 7 DAYS SQ
     Route: 058
     Dates: start: 20230405

REACTIONS (4)
  - Pain [None]
  - Constipation [None]
  - Muscle spasms [None]
  - Ascites [None]
